FAERS Safety Report 18182704 (Version 5)
Quarter: 2021Q2

REPORT INFORMATION
  Report Type: Report from Study
  Country: None (occurrence: US)
  Receive Date: 20200821
  Receipt Date: 20210617
  Transmission Date: 20210717
  Serious: No
  Sender: FDA-Public Use
  Company Number: US-ABBVIE-20P-163-3528633-00

PATIENT
  Age: 48 Year
  Sex: Female
  Weight: 85.1 kg

DRUGS (13)
  1. ELAGOLIX/ESTRADIOL/NORETHINDRONE ACETATE [Suspect]
     Active Substance: ELAGOLIX SODIUM\ESTRADIOL\NORETHINDRONE
     Indication: UTERINE LEIOMYOMA
     Dosage: ELAGOLIX 300 MG, ESTRADIOL/NORETHINDRONE 1.0MG/0.5MG
     Route: 048
     Dates: start: 20181217, end: 20191118
  2. NATURES THYROID [Concomitant]
     Indication: HYPOTHYROIDISM
     Route: 048
     Dates: start: 2016, end: 202004
  3. CALCIUM [Concomitant]
     Active Substance: CALCIUM
     Indication: ROUTINE HEALTH MAINTENANCE
     Route: 048
     Dates: start: 20200529
  4. NAPROXEN. [Concomitant]
     Active Substance: NAPROXEN
     Indication: TEMPOROMANDIBULAR JOINT SYNDROME
     Route: 048
     Dates: start: 20200601
  5. TENUATE?DIETHYLPROPION ER [Concomitant]
     Indication: OBESITY
     Route: 048
     Dates: start: 20200601
  6. ELAGOLIX/ESTRADIOL/NORETHINDRONE ACETATE [Suspect]
     Active Substance: ELAGOLIX SODIUM\ESTRADIOL\NORETHINDRONE
     Indication: UTERINE LEIOMYOMA
     Dosage: ELAGOLIX 300MG, ESTRADIOL/NORETHINDRONE 1.0MG/0.5MG
     Route: 048
     Dates: start: 20191118, end: 20200527
  7. ZYRTEC [Concomitant]
     Active Substance: CETIRIZINE HYDROCHLORIDE
     Indication: SEASONAL ALLERGY
     Route: 048
     Dates: start: 2017
  8. CLONAZEPAM. [Concomitant]
     Active Substance: CLONAZEPAM
     Indication: TEMPOROMANDIBULAR JOINT SYNDROME
     Route: 048
     Dates: start: 20200601
  9. ELAGOLIX [Suspect]
     Active Substance: ELAGOLIX
     Indication: UTERINE LEIOMYOMA
     Dosage: PM DOSE
     Route: 048
     Dates: start: 20181217, end: 20191118
  10. VITAMIN D [Concomitant]
     Active Substance: VITAMIN D NOS
     Indication: VITAMIN D DEFICIENCY
     Route: 048
     Dates: start: 20200529
  11. ELAGOLIX [Suspect]
     Active Substance: ELAGOLIX
     Indication: UTERINE LEIOMYOMA
     Dosage: PM DOSE
     Route: 048
     Dates: start: 20191118, end: 20200527
  12. IRON [Concomitant]
     Active Substance: IRON
     Indication: ANAEMIA
     Route: 048
     Dates: start: 2010
  13. DIETHYLPROPION [Concomitant]
     Active Substance: DIETHYLPROPION
     Indication: OBESITY
     Route: 048
     Dates: start: 20200601

REACTIONS (2)
  - Depression [Not Recovered/Not Resolved]
  - Bone density decreased [Not Recovered/Not Resolved]

NARRATIVE: CASE EVENT DATE: 20200501
